FAERS Safety Report 9346968 (Version 1)
Quarter: 2013Q2

REPORT INFORMATION
  Report Type: Spontaneous
  Country: US (occurrence: US)
  Receive Date: 20130613
  Receipt Date: 20130613
  Transmission Date: 20140414
  Serious: Yes (Hospitalization)
  Sender: FDA-Public Use
  Company Number: US-US-EMD SERONO, INC.-7079930

PATIENT
  Sex: Female
  Weight: 48 kg

DRUGS (5)
  1. REBIF [Suspect]
     Indication: PRODUCT USED FOR UNKNOWN INDICATION
     Route: 058
     Dates: start: 20050802, end: 201102
  2. REBIF [Suspect]
     Route: 058
     Dates: start: 201102
  3. TOPAMAX [Concomitant]
     Indication: HEADACHE
  4. BACLOFEN [Concomitant]
     Indication: MUSCLE SPASTICITY
  5. CYMBALTA [Concomitant]
     Indication: PRODUCT USED FOR UNKNOWN INDICATION

REACTIONS (8)
  - Injection site cellulitis [Unknown]
  - Heart rate increased [Recovered/Resolved]
  - Oedema peripheral [Unknown]
  - Drug hypersensitivity [Unknown]
  - Injection site calcification [Recovered/Resolved]
  - Hyperthyroidism [Unknown]
  - Influenza like illness [Unknown]
  - Incorrect drug administration duration [Unknown]
